FAERS Safety Report 11155543 (Version 1)
Quarter: 2015Q2

REPORT INFORMATION
  Report Type: Spontaneous
  Country: IT (occurrence: IT)
  Receive Date: 20150602
  Receipt Date: 20150602
  Transmission Date: 20150821
  Serious: Yes (Hospitalization)
  Sender: FDA-Public Use
  Company Number: IT-ASTRAZENECA-2015SE52176

PATIENT
  Age: 15960 Day
  Sex: Female

DRUGS (3)
  1. VALDORM [Concomitant]
     Active Substance: VALERIAN
  2. SEROQUEL [Suspect]
     Active Substance: QUETIAPINE FUMARATE
     Route: 048
     Dates: start: 20150517, end: 20150517
  3. HALDOL [Concomitant]
     Active Substance: HALOPERIDOL
     Dosage: 50 MG/ML INJECTABLE SOLUTION FOR INTRAMUSCULAR USE
     Route: 030

REACTIONS (2)
  - Sopor [Recovering/Resolving]
  - Drug abuse [Recovering/Resolving]

NARRATIVE: CASE EVENT DATE: 20150517
